FAERS Safety Report 25576961 (Version 3)
Quarter: 2025Q3

REPORT INFORMATION
  Report Type: Spontaneous
  Country: IN (occurrence: IN)
  Receive Date: 20250718
  Receipt Date: 20250730
  Transmission Date: 20251020
  Serious: Yes (Death, Hospitalization)
  Sender: PFIZER
  Company Number: IN-PFIZER INC-PV202500085259

PATIENT
  Age: 33 Year
  Sex: Male

DRUGS (1)
  1. LORLATINIB [Suspect]
     Active Substance: LORLATINIB
     Dosage: 100 MG, 1X/DAY
     Route: 048
     Dates: start: 20250603

REACTIONS (2)
  - Death [Fatal]
  - Blood disorder [Unknown]

NARRATIVE: CASE EVENT DATE: 20250718
